APPROVED DRUG PRODUCT: ISOLYTE H W/ DEXTROSE 5% IN PLASTIC CONTAINER
Active Ingredient: DEXTROSE; MAGNESIUM CHLORIDE; POTASSIUM CHLORIDE; SODIUM ACETATE; SODIUM CHLORIDE
Strength: 5GM/100ML;30MG/100ML;97MG/100ML;220MG/100ML;140MG/100ML
Dosage Form/Route: INJECTABLE;INJECTION
Application: N018273 | Product #001
Applicant: B BRAUN MEDICAL INC
Approved: Approved Prior to Jan 1, 1982 | RLD: No | RS: No | Type: DISCN